FAERS Safety Report 10979728 (Version 1)
Quarter: 2015Q2

REPORT INFORMATION
  Report Type: Spontaneous
  Country: US (occurrence: US)
  Receive Date: 20150402
  Receipt Date: 20150402
  Transmission Date: 20150821
  Serious: No
  Sender: FDA-Public Use
  Company Number: US-SA-2014SA088442

PATIENT
  Sex: Female

DRUGS (1)
  1. ALLEGRA [Suspect]
     Active Substance: FEXOFENADINE HYDROCHLORIDE
     Dosage: DOSE:1 TEASPOON(S)
     Route: 048
     Dates: start: 20140629

REACTIONS (3)
  - Dizziness [Unknown]
  - Dysgeusia [Unknown]
  - Dysphagia [Unknown]
